FAERS Safety Report 22696175 (Version 4)
Quarter: 2024Q2

REPORT INFORMATION
  Report Type: Report from Study
  Country: US (occurrence: US)
  Receive Date: 20230712
  Receipt Date: 20240424
  Transmission Date: 20240715
  Serious: Yes (Other)
  Sender: FDA-Public Use
  Company Number: US-ARGENX-2022-ARGX-US001535

PATIENT

DRUGS (1)
  1. VYVGART [Suspect]
     Active Substance: EFGARTIGIMOD ALFA-FCAB
     Indication: Myasthenia gravis
     Dosage: UNK
     Route: 042
     Dates: start: 20220422

REACTIONS (4)
  - Prostate cancer recurrent [Not Recovered/Not Resolved]
  - Metastases to spine [Not Recovered/Not Resolved]
  - Cellulitis [Unknown]
  - Cellulitis [Unknown]

NARRATIVE: CASE EVENT DATE: 20220813
